FAERS Safety Report 6590929-0 (Version None)
Quarter: 2010Q1

REPORT INFORMATION
  Report Type: 
  Country: None (occurrence: None)
  Receive Date: 20100219
  Receipt Date: 20100209
  Transmission Date: 20100710
  Serious: Yes (Life-Threatening, Hospitalization)
  Sender: FDA-Public Use
  Company Number: CH-ELI_LILLY_AND_COMPANY-CH201001001418

PATIENT
  Age: 87 Year
  Sex: Male
  Weight: 65 kg

DRUGS (9)
  1. HUMALOG MIX 75/25 [Suspect]
     Dosage: 10 IU, UNK
  2. HUMALOG MIX 75/25 [Suspect]
     Dosage: UNK, UNK
  3. HUMALOG MIX 50/50 [Suspect]
     Dosage: 50 IU, DAILY (1/D)
     Route: 058
     Dates: start: 20000101
  4. HUMALOG MIX 50/50 [Suspect]
     Dosage: 10 IU, UNK
  5. ASPIRIN [Concomitant]
     Indication: CORONARY ARTERY DISEASE
     Dosage: UNK, UNKNOWN
     Route: 048
  6. TORSEMIDE [Concomitant]
     Indication: HYPERTENSION
     Dosage: UNK, UNKNOWN
     Route: 048
  7. CANDESARTAN [Concomitant]
     Indication: HYPERTENSION
     Dosage: UNK, UNKNOWN
     Route: 048
  8. METOPROLOL TARTRATE [Concomitant]
     Indication: HYPERTENSION
     Dosage: 25 MG, UNKNOWN
     Route: 048
  9. FLUVASTATIN [Concomitant]
     Indication: CORONARY ARTERY DISEASE
     Dosage: 40 MG, UNKNOWN
     Route: 048

REACTIONS (3)
  - DRUG SPECIFIC ANTIBODY PRESENT [None]
  - HYPERGLYCAEMIA [None]
  - HYPOGLYCAEMIA [None]
